FAERS Safety Report 19272236 (Version 2)
Quarter: 2021Q2

REPORT INFORMATION
  Report Type: Report from Study
  Country: US (occurrence: US)
  Receive Date: 20210518
  Receipt Date: 20210611
  Transmission Date: 20210717
  Serious: No
  Sender: FDA-Public Use
  Company Number: US-SUNOVION-2021SUN001523

PATIENT
  Age: 79 Year
  Sex: Male

DRUGS (6)
  1. LOSARTAN. [Concomitant]
     Active Substance: LOSARTAN
     Dosage: UNK
  2. KYNMOBI [Suspect]
     Active Substance: APOMORPHINE HYDROCHLORIDE
     Dosage: 10 MG
     Route: 060
     Dates: start: 20210415, end: 20210415
  3. KYNMOBI [Suspect]
     Active Substance: APOMORPHINE HYDROCHLORIDE
     Indication: PARKINSON^S DISEASE
     Dosage: 25 MG, QD
     Route: 060
     Dates: start: 20210415, end: 20210531
  4. KYNMOBI [Suspect]
     Active Substance: APOMORPHINE HYDROCHLORIDE
     Dosage: 15 MG
     Route: 060
     Dates: start: 20210419, end: 20210419
  5. COREG [Concomitant]
     Active Substance: CARVEDILOL
     Dosage: UNK
  6. KYNMOBI [Suspect]
     Active Substance: APOMORPHINE HYDROCHLORIDE
     Dosage: 20 MG
     Route: 060
     Dates: start: 20210420, end: 20210420

REACTIONS (8)
  - Fatigue [Unknown]
  - Balance disorder [Unknown]
  - Dizziness [Unknown]
  - Constipation [Unknown]
  - Malaise [Unknown]
  - Feeling abnormal [Unknown]
  - Asthenia [Unknown]
  - Fall [Unknown]

NARRATIVE: CASE EVENT DATE: 20210419
